FAERS Safety Report 4536239-4 (Version None)
Quarter: 2004Q4

REPORT INFORMATION
  Report Type: 
  Country: None (occurrence: None)
  Receive Date: 20041223
  Receipt Date: 20040507
  Transmission Date: 20050328
  Serious: No
  Sender: FDA-Public Use
  Company Number: US-GLAXOSMITHKLINE-A0510019A

PATIENT
  Age: 52 Year
  Sex: Female

DRUGS (5)
  1. FLONASE [Suspect]
     Dosage: 50MCG PER DAY
     Route: 045
     Dates: start: 20020101
  2. TRAMADOL HCL [Concomitant]
  3. CARISOPRODOL [Concomitant]
  4. IBUPROFEN [Concomitant]
  5. MILK THISTLE [Concomitant]

REACTIONS (2)
  - EPISTAXIS [None]
  - HEADACHE [None]
